FAERS Safety Report 24670499 (Version 1)
Quarter: 2024Q4

REPORT INFORMATION
  Report Type: Spontaneous
  Country: US (occurrence: US)
  Receive Date: 20241127
  Receipt Date: 20241127
  Transmission Date: 20250114
  Serious: Yes (Life-Threatening, Other)
  Sender: PFIZER
  Company Number: US-PFIZER INC-07H-163-0312803-00

PATIENT
  Age: 23 Year
  Sex: Female

DRUGS (2)
  1. FENTANYL CITRATE [Suspect]
     Active Substance: FENTANYL CITRATE
     Indication: Analgesic therapy
     Dosage: 20 UG
     Route: 037
  2. BUPIVACAINE [Concomitant]
     Active Substance: BUPIVACAINE
     Indication: Anaesthesia
     Dosage: 2.5 MG

REACTIONS (3)
  - Areflexia [Recovered/Resolved]
  - Dysphagia [Recovered/Resolved]
  - Exposure during pregnancy [Unknown]
